FAERS Safety Report 14169390 (Version 1)
Quarter: 2017Q4

REPORT INFORMATION
  Report Type: Spontaneous
  Country: US (occurrence: US)
  Receive Date: 20171107
  Receipt Date: 20171107
  Transmission Date: 20180321
  Serious: Yes (Other)
  Sender: FDA-Public Use
  Company Number: None

PATIENT
  Sex: Female
  Weight: 66.6 kg

DRUGS (9)
  1. GLUCOSAMINE SULFATE [Concomitant]
     Active Substance: GLUCOSAMINE SULFATE
  2. CALCIUM-VITAMIN D [Concomitant]
  3. OMEGA 3 [Concomitant]
     Active Substance: OMEGA-3 FATTY ACIDS
  4. EGETARIAN [Concomitant]
  5. APIXABAN [Concomitant]
     Active Substance: APIXABAN
  6. LEVOTHYROXINE. [Concomitant]
     Active Substance: LEVOTHYROXINE
  7. CYANOBALAMIN [Concomitant]
  8. AMOXICILLIN 875 MG [Suspect]
     Active Substance: AMOXICILLIN
     Indication: NEURALGIA
     Dosage: ?          QUANTITY:1 CAPSULE(S); EVERY 12 HOURS ORAL?
     Route: 048
  9. DILTIAZEM. [Concomitant]
     Active Substance: DILTIAZEM

REACTIONS (8)
  - Nausea [None]
  - Muscle spasms [None]
  - Diarrhoea [None]
  - Asthenia [None]
  - Gastrointestinal pain [None]
  - Choluria [None]
  - Vomiting [None]
  - Haematochezia [None]

NARRATIVE: CASE EVENT DATE: 20171028
